FAERS Safety Report 13633636 (Version 1)
Quarter: 2017Q2

REPORT INFORMATION
  Report Type: Spontaneous
  Country: US (occurrence: US)
  Receive Date: 20170531
  Receipt Date: 20170531
  Transmission Date: 20170830
  Serious: No
  Sender: FDA-Public Use
  Company Number: US-ASTELLAS-1564132

PATIENT
  Age: 79 Year
  Sex: Female

DRUGS (6)
  1. TARCEVA [Suspect]
     Active Substance: ERLOTINIB HYDROCHLORIDE
     Indication: LUNG NEOPLASM MALIGNANT
     Route: 048
     Dates: start: 20150304
  2. FAMOTIDINE. [Concomitant]
     Active Substance: FAMOTIDINE
  3. TARCEVA [Suspect]
     Active Substance: ERLOTINIB HYDROCHLORIDE
     Route: 048
     Dates: start: 20150623
  4. TARCEVA [Suspect]
     Active Substance: ERLOTINIB HYDROCHLORIDE
     Route: 048
     Dates: start: 20150305, end: 20150529
  5. LOSARTAN. [Concomitant]
     Active Substance: LOSARTAN
  6. METOPROLOL TARTRATE. [Concomitant]
     Active Substance: METOPROLOL TARTRATE

REACTIONS (6)
  - Decreased appetite [Not Recovered/Not Resolved]
  - Eye pruritus [Recovered/Resolved]
  - Constipation [Unknown]
  - Rash [Not Recovered/Not Resolved]
  - Gastric disorder [Recovered/Resolved]
  - Gastrooesophageal reflux disease [Not Recovered/Not Resolved]

NARRATIVE: CASE EVENT DATE: 20150529
